FAERS Safety Report 21087810 (Version 2)
Quarter: 2022Q3

REPORT INFORMATION
  Report Type: Spontaneous
  Country: JP (occurrence: JP)
  Receive Date: 20220715
  Receipt Date: 20220929
  Transmission Date: 20221026
  Serious: Yes (Life-Threatening, Hospitalization, Other)
  Sender: FDA-Public Use
  Company Number: JP-GLAXOSMITHKLINE-JP2022JPN106802

PATIENT

DRUGS (3)
  1. SOTROVIMAB [Suspect]
     Active Substance: SOTROVIMAB
     Indication: COVID-19
     Dosage: 500 MG
     Route: 064
     Dates: start: 20220412, end: 20220412
  2. MAGNESIUM OXIDE [Suspect]
     Active Substance: MAGNESIUM OXIDE
     Indication: Constipation
     Dosage: 250 MG/DOSE
     Route: 064
     Dates: start: 20220411
  3. DEXTROMETHORPHAN [Suspect]
     Active Substance: DEXTROMETHORPHAN
     Indication: Cough
     Dosage: 45 MG/DAY
     Route: 064
     Dates: start: 20220412, end: 20220415

REACTIONS (2)
  - Apgar score low [Unknown]
  - Foetal exposure during pregnancy [Unknown]
